FAERS Safety Report 13666633 (Version 1)
Quarter: 2017Q2

REPORT INFORMATION
  Report Type: Spontaneous
  Country: US (occurrence: US)
  Receive Date: 20170619
  Receipt Date: 20170619
  Transmission Date: 20170830
  Serious: No
  Sender: FDA-Public Use
  Company Number: US-ROCHE-1436930

PATIENT
  Sex: Female

DRUGS (10)
  1. XELODA [Suspect]
     Active Substance: CAPECITABINE
     Indication: BREAST CANCER
     Dosage: 2 IN THE AM, 2 IN THE PM, 1 WEEK ON, 1 WEEK OFF
     Route: 048
     Dates: start: 201404
  2. XELODA [Suspect]
     Active Substance: CAPECITABINE
     Indication: BONE CANCER
  3. DIGOXIN. [Concomitant]
     Active Substance: DIGOXIN
     Indication: CEREBROVASCULAR ACCIDENT
     Route: 065
  4. XGEVA [Concomitant]
     Active Substance: DENOSUMAB
     Route: 065
  5. TOPROL XL [Concomitant]
     Active Substance: METOPROLOL SUCCINATE
     Indication: CEREBROVASCULAR ACCIDENT
     Route: 065
  6. LOSARTAN/HCTZ [Concomitant]
     Active Substance: HYDROCHLOROTHIAZIDE\LOSARTAN
     Indication: CEREBROVASCULAR ACCIDENT
     Route: 065
  7. FASLODEX [Suspect]
     Active Substance: FULVESTRANT
     Indication: BREAST CANCER
     Dosage: DISCONTINUED, CHANGED TO XELODA
     Route: 065
  8. FASLODEX [Suspect]
     Active Substance: FULVESTRANT
     Indication: BONE CANCER
  9. COPAXONE [Concomitant]
     Active Substance: GLATIRAMER ACETATE
     Indication: MULTIPLE SCLEROSIS
     Dosage: FOR 10 YEARS
     Route: 065
     Dates: end: 2014
  10. GLIPIZIDE. [Concomitant]
     Active Substance: GLIPIZIDE
     Indication: DIABETES MELLITUS
     Route: 065

REACTIONS (4)
  - Eating disorder [Not Recovered/Not Resolved]
  - Drug ineffective [Unknown]
  - Decreased appetite [Not Recovered/Not Resolved]
  - Dysphagia [Not Recovered/Not Resolved]
